FAERS Safety Report 5075348-0 (Version None)
Quarter: 2006Q3

REPORT INFORMATION
  Report Type: 
  Country: None (occurrence: None)
  Receive Date: 20060809
  Receipt Date: 20051107
  Transmission Date: 20061208
  Serious: No
  Sender: FDA-Public Use
  Company Number: US-AMGEN-KDL157228

PATIENT
  Sex: Male
  Weight: 78.5 kg

DRUGS (6)
  1. PROCRIT [Suspect]
     Indication: ANAEMIA
     Dates: start: 20050926
  2. LIPITOR [Concomitant]
  3. BUMEX [Concomitant]
  4. COUMADIN [Concomitant]
  5. DIGITOXIN [Concomitant]
  6. POTASSIUM [Concomitant]

REACTIONS (1)
  - OEDEMA PERIPHERAL [None]
